FAERS Safety Report 5671325-7 (Version None)
Quarter: 2008Q1

REPORT INFORMATION
  Report Type: 
  Country: None (occurrence: None)
  Receive Date: 20080313
  Receipt Date: 20080303
  Transmission Date: 20080703
  Serious: Yes (Hospitalization, Other)
  Sender: FDA-Public Use
  Company Number: URSO-2008-028

PATIENT
  Age: 70 Year
  Sex: Female
  Weight: 54.8852 kg

DRUGS (6)
  1. URSO 250 [Suspect]
     Indication: BILIARY CIRRHOSIS PRIMARY
     Dosage: 500 MG BID PER ORAL
     Route: 048
     Dates: start: 20040101
  2. INSULIN [Concomitant]
  3. LYRICA [Concomitant]
  4. FLAGYL [Concomitant]
  5. PRILOSEC [Concomitant]
  6. LOMOTIL (ATROPINE AND DIPHENOXYLATE) AND ATARAX (HYDROXYZINE) [Concomitant]

REACTIONS (12)
  - ANAEMIA [None]
  - ARTERIOVENOUS MALFORMATION [None]
  - AUTOIMMUNE HEPATITIS [None]
  - BILE DUCT STONE [None]
  - BILIARY CIRRHOSIS PRIMARY [None]
  - CHOLANGITIS [None]
  - CHOLELITHIASIS [None]
  - DIARRHOEA [None]
  - DYSPEPSIA [None]
  - GASTROINTESTINAL HAEMORRHAGE [None]
  - TREATMENT NONCOMPLIANCE [None]
  - VOMITING [None]
